FAERS Safety Report 17601993 (Version 1)
Quarter: 2020Q1

REPORT INFORMATION
  Report Type: Spontaneous
  Country: US (occurrence: US)
  Receive Date: 20200330
  Receipt Date: 20200330
  Transmission Date: 20200409
  Serious: Yes (Life-Threatening, Other)
  Sender: FDA-Public Use
  Company Number: US-PURDUE-USA-2020-0150677

PATIENT
  Sex: Female

DRUGS (7)
  1. OXYFAST [Suspect]
     Active Substance: OXYCODONE
     Indication: PRODUCT USED FOR UNKNOWN INDICATION
     Route: 048
  2. TRAMADOL. [Suspect]
     Active Substance: TRAMADOL
     Indication: PRODUCT USED FOR UNKNOWN INDICATION
     Route: 065
  3. LORTAB [Suspect]
     Active Substance: ACETAMINOPHEN\HYDROCODONE BITARTRATE
     Indication: PRODUCT USED FOR UNKNOWN INDICATION
     Dosage: UNK
     Route: 065
     Dates: start: 2008
  4. PERCOCET [Suspect]
     Active Substance: ACETAMINOPHEN\OXYCODONE HYDROCHLORIDE
     Indication: PRODUCT USED FOR UNKNOWN INDICATION
     Dosage: UNK
     Route: 065
     Dates: start: 2008
  5. HYDROCODONE BITARTRATE AND ACETAMINOPHEN [Suspect]
     Active Substance: ACETAMINOPHEN\HYDROCODONE BITARTRATE
     Indication: PRODUCT USED FOR UNKNOWN INDICATION
     Route: 048
  6. DILAUDID [Suspect]
     Active Substance: HYDROMORPHONE HYDROCHLORIDE
     Indication: PRODUCT USED FOR UNKNOWN INDICATION
     Route: 048
  7. OXYCODONE HCL TABLETS (RHODES 91-490) [Suspect]
     Active Substance: OXYCODONE HYDROCHLORIDE
     Indication: PRODUCT USED FOR UNKNOWN INDICATION
     Route: 048

REACTIONS (39)
  - Substance use disorder [Unknown]
  - Overdose [Unknown]
  - Near death experience [Unknown]
  - Abdominal distension [Unknown]
  - Dyspepsia [Unknown]
  - Ulcer [Unknown]
  - Emotional distress [Unknown]
  - Headache [Unknown]
  - Multiple cardiac defects [Unknown]
  - Drug interaction [Unknown]
  - Malaise [Unknown]
  - Learning disability [Unknown]
  - Drug dependence [Unknown]
  - Quality of life decreased [Unknown]
  - Blood pressure increased [Unknown]
  - Stress [Unknown]
  - Hepatic steatosis [Unknown]
  - Diarrhoea [Unknown]
  - Injury [Unknown]
  - Hepatic enzyme increased [Unknown]
  - Renal disorder [Unknown]
  - Pain [Unknown]
  - Insomnia [Unknown]
  - Heart rate increased [Unknown]
  - Road traffic accident [Unknown]
  - Fall [Unknown]
  - Abdominal pain upper [Unknown]
  - Vomiting [Unknown]
  - Depression [Unknown]
  - Anxiety [Unknown]
  - Myocardial necrosis marker increased [Unknown]
  - Sleep apnoea syndrome [Unknown]
  - Urinary incontinence [Unknown]
  - Anal incontinence [Unknown]
  - Weight decreased [Unknown]
  - Oxygen saturation decreased [Unknown]
  - Decreased appetite [Unknown]
  - Impaired work ability [Unknown]
  - Hyperhidrosis [Unknown]

NARRATIVE: CASE EVENT DATE: 2008
